FAERS Safety Report 8574405-1 (Version None)
Quarter: 2012Q3

REPORT INFORMATION
  Report Type: 
  Country: None (occurrence: None)
  Receive Date: 20120806
  Receipt Date: 20120730
  Transmission Date: 20120928
  Serious: Yes (Hospitalization, Other)
  Sender: FDA-Public Use
  Company Number: JP-ABBOTT-12P-087-0962127-00

PATIENT
  Sex: Male

DRUGS (5)
  1. ALLOPURINOL [Concomitant]
     Indication: HYPERURICAEMIA
  2. CANDESARTAN CILEXETIL [Concomitant]
     Indication: HYPERTENSION
  3. KALETRA [Suspect]
     Indication: HIV INFECTION
     Route: 048
  4. RALTEGRAVIR [Concomitant]
     Indication: HIV INFECTION
     Route: 048
  5. TENOFOVIR DISOPROXIL FUMARATE [Concomitant]
     Indication: HIV INFECTION
     Route: 048

REACTIONS (2)
  - IRON DEFICIENCY ANAEMIA [None]
  - COLONIC POLYP [None]
